FAERS Safety Report 22936356 (Version 2)
Quarter: 2023Q4

REPORT INFORMATION
  Report Type: Report from Study
  Country: US (occurrence: US)
  Receive Date: 20230912
  Receipt Date: 20231103
  Transmission Date: 20240110
  Serious: Yes (Other)
  Sender: FDA-Public Use
  Company Number: US-ABBVIE-5401313

PATIENT
  Sex: Male
  Weight: 127.01 kg

DRUGS (2)
  1. HUMIRA [Suspect]
     Active Substance: ADALIMUMAB
     Indication: Crohn^s disease
     Dosage: CITRATE FREE; FORM STRENGTH: 40MG
     Route: 058
     Dates: start: 2022, end: 2022
  2. HUMIRA [Suspect]
     Active Substance: ADALIMUMAB
     Dosage: CITRATE FREE; FORM STRENGTH: 40MG
     Route: 058
     Dates: start: 2022

REACTIONS (21)
  - Gastrointestinal disorder [Unknown]
  - Enteritis [Unknown]
  - Large intestine polyp [Unknown]
  - Hepatic steatosis [Unknown]
  - Pancreatic atrophy [Unknown]
  - Abdominal pain upper [Unknown]
  - Procedural pain [Not Recovered/Not Resolved]
  - C-reactive protein increased [Unknown]
  - Blood glucose abnormal [Unknown]
  - Serum ferritin increased [Unknown]
  - Blood folate abnormal [Unknown]
  - Pain in extremity [Unknown]
  - Diarrhoea [Unknown]
  - White blood cell count abnormal [Unknown]
  - Sinusitis [Unknown]
  - Crohn^s disease [Unknown]
  - Abdominal discomfort [Unknown]
  - Abdominal pain lower [Unknown]
  - Dental care [Unknown]
  - Stool analysis abnormal [Unknown]
  - Gastrointestinal motility disorder [Unknown]

NARRATIVE: CASE EVENT DATE: 20220101
